FAERS Safety Report 26171423 (Version 1)
Quarter: 2025Q4

REPORT INFORMATION
  Report Type: Spontaneous
  Country: US (occurrence: US)
  Receive Date: 20251217
  Receipt Date: 20251217
  Transmission Date: 20260118
  Serious: No
  Sender: LENZ Therapeutics
  Company Number: US-LENZ THERAPEUTICS, INC.-2025LTS000052

PATIENT
  Age: 54 Year
  Sex: Male
  Weight: 90.703 kg

DRUGS (2)
  1. VIZZ [Suspect]
     Active Substance: ACECLIDINE HYDROCHLORIDE
     Indication: Presbyopia
     Dosage: 0.4 MILLILITER, QD
     Route: 047
     Dates: start: 20251006
  2. VIZZ [Suspect]
     Active Substance: ACECLIDINE HYDROCHLORIDE
     Indication: Hypermetropia

REACTIONS (3)
  - Instillation site irritation [Recovered/Resolved]
  - Visual impairment [Recovered/Resolved]
  - Headache [Recovered/Resolved]

NARRATIVE: CASE EVENT DATE: 20251006
